FAERS Safety Report 14105308 (Version 2)
Quarter: 2017Q4

REPORT INFORMATION
  Report Type: Report from Study
  Country: US (occurrence: DE)
  Receive Date: 20171018
  Receipt Date: 20171031
  Transmission Date: 20180321
  Serious: Yes (Death, Life-Threatening, Hospitalization, Other)
  Sender: FDA-Public Use
  Company Number: US-SUNOVION-2017SUN004437

PATIENT

DRUGS (8)
  1. INDACATEROL AND GLYCOPYRROLATE [Suspect]
     Active Substance: GLYCOPYRROLATE\INDACATEROL MALEATE
     Indication: CHRONIC OBSTRUCTIVE PULMONARY DISEASE
     Dosage: 1 (85 UG/ 43 UG), QD
     Route: 055
     Dates: start: 20140105
  2. PREDNISOLON JENAPHARM [Concomitant]
     Dosage: UNK
     Dates: start: 20140105
  3. SALBUTAMOL CT [Concomitant]
     Dosage: UNK
     Route: 055
     Dates: start: 20140105
  4. TILIDIN AL COMP [Concomitant]
     Dosage: UNK
     Dates: start: 20140105
  5. METOPROLOL. [Concomitant]
     Active Substance: METOPROLOL
     Dosage: UNK
     Dates: start: 20170126
  6. ATMADISC [Concomitant]
     Active Substance: FLUTICASONE PROPIONATE\SALMETEROL XINAFOATE
     Dosage: UNK
     Route: 055
     Dates: start: 20140105
  7. VERAPAMIL AL [Concomitant]
     Dosage: UNK
     Dates: start: 20140105
  8. FENTANYL AL [Concomitant]
     Dosage: UNK
     Dates: start: 20140105

REACTIONS (2)
  - Chronic obstructive pulmonary disease [Not Recovered/Not Resolved]
  - Myocardial infarction [Fatal]

NARRATIVE: CASE EVENT DATE: 20150511
